FAERS Safety Report 5310288-0 (Version None)
Quarter: 2007Q2

REPORT INFORMATION
  Report Type: 
  Country: None (occurrence: None)
  Receive Date: 20070427
  Receipt Date: 20070417
  Transmission Date: 20071010
  Serious: Yes (Hospitalization, Other)
  Sender: FDA-Public Use
  Company Number: IL-SANOFI-SYNTHELABO-F01200602548

PATIENT
  Sex: Female
  Weight: 66 kg

DRUGS (11)
  1. CLOPIDOGREL [Suspect]
     Indication: ACUTE CORONARY SYNDROME
     Dosage: UNK
     Dates: start: 20050928, end: 20060717
  2. BONDORMIN [Concomitant]
     Dosage: UNK
     Route: 065
     Dates: end: 20070710
  3. BONDORMIN [Concomitant]
     Dosage: UNK
     Route: 065
     Dates: start: 20070712
  4. PREDNISONE TAB [Concomitant]
     Dosage: UNK
     Route: 065
     Dates: end: 20070710
  5. PREDNISONE TAB [Concomitant]
     Dosage: UNK
     Route: 065
     Dates: start: 20070712
  6. LOSEC [Concomitant]
     Dosage: UNK
     Route: 065
     Dates: end: 20070710
  7. LOSEC [Concomitant]
     Dosage: UNK
     Route: 065
     Dates: start: 20070712
  8. NORMITEN [Concomitant]
     Dosage: UNK
     Route: 065
     Dates: end: 20070710
  9. NORMITEN [Concomitant]
     Dosage: UNK
     Route: 065
     Dates: start: 20070712
  10. ASPIRIN [Concomitant]
     Dosage: UNK
     Route: 065
     Dates: end: 20070710
  11. ASPIRIN [Concomitant]
     Dosage: UNK
     Route: 065
     Dates: start: 20070712

REACTIONS (2)
  - RECTAL HAEMORRHAGE [None]
  - SCLERODERMA [None]
